FAERS Safety Report 5028592-2 (Version None)
Quarter: 2006Q2

REPORT INFORMATION
  Report Type: 
  Country: None (occurrence: None)
  Receive Date: 20060615
  Receipt Date: 20060615
  Transmission Date: 20061013
  Serious: Yes (Disabling)
  Sender: FDA-Public Use
  Company Number: None

PATIENT
  Age: 67 Year
  Sex: Male
  Weight: 124.7 kg

DRUGS (3)
  1. ETODOLAC [Suspect]
     Indication: BACK PAIN
     Dosage: 200MG   BID   PO   (3 DOSES)
     Route: 048
     Dates: start: 20060430, end: 20060501
  2. ETODOLAC [Suspect]
     Indication: NECK PAIN
     Dosage: 200MG   BID   PO   (3 DOSES)
     Route: 048
     Dates: start: 20060430, end: 20060501
  3. ETODOLAC [Suspect]
     Indication: SHOULDER PAIN
     Dosage: 200MG   BID   PO   (3 DOSES)
     Route: 048
     Dates: start: 20060430, end: 20060501

REACTIONS (1)
  - PRIAPISM [None]
